FAERS Safety Report 17936382 (Version 1)
Quarter: 2020Q2

REPORT INFORMATION
  Report Type: Spontaneous
  Country: CA (occurrence: CA)
  Receive Date: 20200624
  Receipt Date: 20200624
  Transmission Date: 20200714
  Serious: Yes (Other)
  Sender: FDA-Public Use
  Company Number: CA-NOVOPROD-734638

PATIENT
  Sex: Female

DRUGS (3)
  1. LANTUS [Concomitant]
     Active Substance: INSULIN GLARGINE
     Dosage: 10 UNITS
     Route: 065
  2. OZEMPIC [Suspect]
     Active Substance: SEMAGLUTIDE
     Indication: PRODUCT USED FOR UNKNOWN INDICATION
     Dosage: UNK
     Route: 065
     Dates: start: 20200610
  3. LANTUS [Concomitant]
     Active Substance: INSULIN GLARGINE
     Dosage: 14 UNITS
     Route: 065

REACTIONS (9)
  - Blood glucose decreased [Unknown]
  - Urinary incontinence [Unknown]
  - Vertigo [Unknown]
  - Vomiting [Unknown]
  - Abdominal discomfort [Unknown]
  - Loss of consciousness [Unknown]
  - Nausea [Unknown]
  - Screaming [Unknown]
  - Muscle spasms [Unknown]

NARRATIVE: CASE EVENT DATE: 202006
